FAERS Safety Report 17329271 (Version 2)
Quarter: 2020Q3

REPORT INFORMATION
  Report Type: Spontaneous
  Country: US (occurrence: US)
  Receive Date: 20200127
  Receipt Date: 20200717
  Transmission Date: 20201102
  Serious: No
  Sender: FDA-Public Use
  Company Number: US-SA-2020SA017524

PATIENT

DRUGS (10)
  1. FLUOXETINE [Concomitant]
     Active Substance: FLUOXETINE HYDROCHLORIDE
  2. ZOMIG [Concomitant]
     Active Substance: ZOLMITRIPTAN
  3. DUPIXENT [Suspect]
     Active Substance: DUPILUMAB
     Indication: DERMATITIS ATOPIC
  4. DUPIXENT [Suspect]
     Active Substance: DUPILUMAB
     Indication: ASTHMA
     Dosage: 300 MG, QOW
     Route: 058
     Dates: start: 20171013
  5. PETROLATUM. [Concomitant]
     Active Substance: PETROLATUM
  6. SINGULAIR [Concomitant]
     Active Substance: MONTELUKAST SODIUM
  7. ZYRTEC [Concomitant]
     Active Substance: CETIRIZINE HYDROCHLORIDE
  8. DUPIXENT [Suspect]
     Active Substance: DUPILUMAB
     Indication: NASAL POLYPS
  9. BENADRYL [ACRIVASTINE] [Concomitant]
     Active Substance: ACRIVASTINE
  10. ACETAMINOPHEN;BUTALBITAL;CAFFEINE;CODEINE P [Concomitant]
     Active Substance: ACETAMINOPHEN\BUTALBITAL\CAFFEINE\CODEINE PHOSPHATE

REACTIONS (5)
  - Hordeolum [Not Recovered/Not Resolved]
  - Eye pain [Recovering/Resolving]
  - Pyrexia [Not Recovered/Not Resolved]
  - Eyelid pain [Recovering/Resolving]
  - Rash [Unknown]

NARRATIVE: CASE EVENT DATE: 2020
